FAERS Safety Report 18869706 (Version 1)
Quarter: 2021Q1

REPORT INFORMATION
  Report Type: Spontaneous
  Country: JP (occurrence: JP)
  Receive Date: 20210210
  Receipt Date: 20210210
  Transmission Date: 20210420
  Serious: Yes (Hospitalization, Other)
  Sender: FDA-Public Use
  Company Number: JP-JNJFOC-20210109993

PATIENT
  Age: 94 Year
  Sex: Male
  Weight: 43.8 kg

DRUGS (9)
  1. LANSOPRAZOLE. [Concomitant]
     Active Substance: LANSOPRAZOLE
     Indication: GASTROOESOPHAGEAL REFLUX DISEASE
     Dosage: DAILY DOSE 15 MG
     Route: 048
     Dates: start: 20201231
  2. UNASYN S [Concomitant]
     Active Substance: AMPICILLIN SODIUM\SULBACTAM SODIUM
     Indication: PYREXIA
     Dosage: DAILY DOSE 6 G
     Route: 042
     Dates: start: 20201231
  3. BISOLVON A [Concomitant]
     Indication: PRODUCTIVE COUGH
     Dosage: DAILY DOSE 12 MG
     Route: 048
     Dates: start: 20201231
  4. MUCOSTA [Concomitant]
     Active Substance: REBAMIPIDE
     Indication: GASTRITIS
     Dosage: DAILY DOSE 300 MG
     Route: 048
     Dates: start: 20201231
  5. UNASYN S [Concomitant]
     Active Substance: AMPICILLIN SODIUM\SULBACTAM SODIUM
     Indication: PNEUMONIA
  6. XARELTO [Suspect]
     Active Substance: RIVAROXABAN
     Dosage: DAILY DOSE 10 MG
     Route: 048
     Dates: start: 20210123
  7. URSO [Concomitant]
     Active Substance: URSODIOL
     Indication: HEPATOBILIARY DISEASE
     Dosage: DAILY DOSE 300 MG
     Route: 048
     Dates: start: 20210104
  8. XARELTO [Suspect]
     Active Substance: RIVAROXABAN
     Indication: ATRIAL FIBRILLATION
     Dosage: DAILY DOSE 10 MG
     Route: 048
     Dates: start: 20210102, end: 20210105
  9. EDARAVONE [Concomitant]
     Active Substance: EDARAVONE
     Indication: CEREBRAL INFARCTION
     Dosage: DAILY DOSE 60 MG
     Route: 042
     Dates: start: 20201231

REACTIONS (4)
  - Haemorrhagic cerebral infarction [Recovered/Resolved with Sequelae]
  - Dyslalia [Unknown]
  - Depressed level of consciousness [Recovered/Resolved with Sequelae]
  - Hemiplegia [Unknown]

NARRATIVE: CASE EVENT DATE: 20210105
